FAERS Safety Report 12850529 (Version 3)
Quarter: 2016Q4

REPORT INFORMATION
  Report Type: Report from Study
  Country: US (occurrence: US)
  Receive Date: 20161014
  Receipt Date: 20161108
  Transmission Date: 20170207
  Serious: Yes (Other)
  Sender: FDA-Public Use
  Company Number: US-TEVA-702326USA

PATIENT
  Age: 46 Year
  Sex: Female

DRUGS (1)
  1. COPAXONE [Suspect]
     Active Substance: GLATIRAMER ACETATE
     Indication: MULTIPLE SCLEROSIS
     Route: 058
     Dates: start: 20161001

REACTIONS (2)
  - Pharyngeal oedema [Not Recovered/Not Resolved]
  - Obstructive airways disorder [Not Recovered/Not Resolved]

NARRATIVE: CASE EVENT DATE: 201610
